FAERS Safety Report 16419784 (Version 4)
Quarter: 2019Q3

REPORT INFORMATION
  Report Type: Report from Study
  Country: US (occurrence: US)
  Receive Date: 20190612
  Receipt Date: 20190904
  Transmission Date: 20191004
  Serious: Yes (Hospitalization, Other)
  Sender: FDA-Public Use
  Company Number: US-B.I. PHARMACEUTICALS,INC./RIDGEFIELD-2019-BI-006573

PATIENT
  Age: 64 Year
  Sex: Male

DRUGS (3)
  1. OFEV [Suspect]
     Active Substance: NINTEDANIB
     Route: 048
     Dates: start: 20190609
  2. OFEV [Suspect]
     Active Substance: NINTEDANIB
     Indication: IDIOPATHIC PULMONARY FIBROSIS
     Route: 048
     Dates: start: 20190125
  3. OFEV [Suspect]
     Active Substance: NINTEDANIB
     Route: 048
     Dates: start: 201901, end: 20190606

REACTIONS (16)
  - Seasonal allergy [Unknown]
  - Cerebrovascular accident [Not Recovered/Not Resolved]
  - Fatigue [Unknown]
  - Feeling abnormal [Not Recovered/Not Resolved]
  - Gallbladder disorder [Unknown]
  - Cholelithiasis [Recovered/Resolved]
  - Malaise [Not Recovered/Not Resolved]
  - Hepatic enzyme increased [Not Recovered/Not Resolved]
  - Gallbladder operation [Unknown]
  - Diarrhoea [Not Recovered/Not Resolved]
  - Sputum discoloured [Not Recovered/Not Resolved]
  - Paraesthesia [Unknown]
  - Weight decreased [Unknown]
  - Nausea [Not Recovered/Not Resolved]
  - Dehydration [Recovered/Resolved]
  - Diarrhoea [Recovered/Resolved]

NARRATIVE: CASE EVENT DATE: 2019
